FAERS Safety Report 7702317-1 (Version None)
Quarter: 2011Q3

REPORT INFORMATION
  Report Type: 
  Country: None (occurrence: None)
  Receive Date: 20110822
  Receipt Date: 20110812
  Transmission Date: 20111222
  Serious: Yes (Other)
  Sender: FDA-Public Use
  Company Number: PHHY2011IN73142

PATIENT
  Age: 79 Year

DRUGS (6)
  1. LOSARTAN [Concomitant]
     Dosage: UNK
     Dates: start: 20050101
  2. TELMISARTAN [Concomitant]
     Dosage: UNK
     Dates: start: 20050301
  3. VITAMIN B-12 [Concomitant]
  4. NICOTINAMIDE [Concomitant]
  5. FOLIC ACID [Concomitant]
  6. RAMIPRIL [Suspect]

REACTIONS (3)
  - GLOSSITIS [None]
  - ORAL DISORDER [None]
  - AGEUSIA [None]
